FAERS Safety Report 11837935 (Version 2)
Quarter: 2016Q2

REPORT INFORMATION
  Report Type: Report from Study
  Country: JP (occurrence: JP)
  Receive Date: 20151215
  Receipt Date: 20160405
  Transmission Date: 20160815
  Serious: Yes (Other)
  Sender: FDA-Public Use
  Company Number: JP-PURDUE PHARMA-GBR-2015-0032748

PATIENT
  Age: 87 Year
  Sex: Female
  Weight: 57.7 kg

DRUGS (20)
  1. MUCOSTA [Concomitant]
     Active Substance: REBAMIPIDE
     Dosage: 200 MG, DAILY
     Route: 048
     Dates: start: 20140213, end: 20140716
  2. ELCITONIN [Concomitant]
     Active Substance: ELCATONIN
     Indication: OSTEOPOROSIS
     Dosage: 20 DF, DAILY
     Route: 042
     Dates: start: 20150109, end: 20150427
  3. BTDS PATCH [Suspect]
     Active Substance: BUPRENORPHINE
     Dosage: 10 MCG, Q1H
     Route: 062
     Dates: start: 20140731, end: 20140828
  4. BTDS PATCH [Suspect]
     Active Substance: BUPRENORPHINE
     Dosage: 5 MCG, Q1H
     Route: 062
     Dates: start: 20140612, end: 20140724
  5. EDIROL [Concomitant]
     Active Substance: ELDECALCITOL
     Indication: OSTEOPOROSIS
     Dosage: 0.75 MCG, DAILY
     Route: 048
     Dates: start: 20140122, end: 20140716
  6. CALONAL [Concomitant]
     Active Substance: ACETAMINOPHEN
     Indication: OSTEOARTHRITIS
     Dosage: 3000 MG, DAILY
     Route: 048
     Dates: start: 20150324
  7. NOVAMIN                            /00013301/ [Concomitant]
     Active Substance: PROCHLORPERAZINE MALEATE
     Indication: PROPHYLAXIS
     Dosage: 15 MG, DAILY
     Route: 048
     Dates: start: 20140612, end: 20140702
  8. BTDS PATCH [Suspect]
     Active Substance: BUPRENORPHINE
     Indication: ANALGESIC THERAPY
     Dosage: 10 MCG, Q1H
     Route: 062
     Dates: start: 20150216
  9. WYPAX [Concomitant]
     Active Substance: LORAZEPAM
     Indication: DEPRESSION
     Dosage: 0.5 DF, DAILY
     Route: 048
     Dates: start: 20140128, end: 20150129
  10. AIMIX [Concomitant]
     Active Substance: AMLODIPINE BESYLATE\IRBESARTAN
     Indication: HYPERTENSION
     Dosage: 1 DF, DAILY
     Route: 048
     Dates: start: 20140122
  11. PAXIL CR [Concomitant]
     Active Substance: PAROXETINE HYDROCHLORIDE
     Indication: DEPRESSION
     Dosage: 12.5 MG, DAILY
     Route: 048
     Dates: start: 20141201
  12. ATORVASTATIN                       /01326102/ [Concomitant]
     Active Substance: ATORVASTATIN
     Indication: HYPERCHOLESTEROLAEMIA
     Dosage: 10 MG, DAILY
     Route: 048
     Dates: start: 20130704, end: 20140910
  13. CALONAL [Concomitant]
     Active Substance: ACETAMINOPHEN
     Dosage: 1200 MG, DAILY
     Route: 048
     Dates: start: 20140213, end: 20140716
  14. FORTEO [Concomitant]
     Active Substance: TERIPARATIDE
     Indication: OSTEOPOROSIS
     Dosage: 20 MCG, DAILY
     Route: 042
     Dates: start: 20150519
  15. RECALBON [Concomitant]
     Active Substance: MINODRONIC ACID
     Indication: OSTEOPOROSIS
     Dosage: 50 MG, MONTHLY
     Route: 048
     Dates: start: 20140122, end: 20150420
  16. BTDS PATCH [Suspect]
     Active Substance: BUPRENORPHINE
     Dosage: 20 MCG, Q1H
     Route: 062
     Dates: start: 20140904, end: 20150210
  17. YOKU-KAN-SAN [Concomitant]
     Indication: INSOMNIA
     Dosage: 7.5 G, DAILY
     Route: 048
     Dates: start: 20140128, end: 20140827
  18. MUCOSTA [Concomitant]
     Active Substance: REBAMIPIDE
     Indication: PROPHYLAXIS
     Dosage: 200 MG, DAILY
     Route: 048
     Dates: start: 20150418
  19. GOSHA-JINKI-GAN [Concomitant]
     Active Substance: HERBALS
     Indication: OSTEOARTHRITIS
     Dosage: 22.5 G, DAILY
     Route: 048
     Dates: start: 20150605
  20. ELCITONIN [Concomitant]
     Active Substance: ELCATONIN
     Dosage: 20 DF, DAILY
     Route: 042
     Dates: start: 20140801, end: 20141128

REACTIONS (6)
  - Fall [Recovered/Resolved]
  - Pelvic fracture [Recovered/Resolved]
  - Wound [Recovered/Resolved]
  - Dizziness [Recovered/Resolved]
  - Fall [Recovered/Resolved]
  - Dizziness postural [Recovered/Resolved]

NARRATIVE: CASE EVENT DATE: 20150127
